FAERS Safety Report 7769483-3 (Version None)
Quarter: 2011Q3

REPORT INFORMATION
  Report Type: 
  Country: None (occurrence: None)
  Receive Date: 20110922
  Receipt Date: 20110517
  Transmission Date: 20111222
  Serious: No
  Sender: FDA-Public Use
  Company Number: US-ASTRAZENECA-2011SE30341

PATIENT
  Age: 69 Year
  Sex: Female

DRUGS (1)
  1. SEROQUEL [Suspect]
     Route: 048

REACTIONS (6)
  - SWELLING FACE [None]
  - PERIPHERAL NERVE LESION [None]
  - DRUG HYPERSENSITIVITY [None]
  - ORAL SURGERY [None]
  - PAIN [None]
  - PARAESTHESIA [None]
